FAERS Safety Report 7269395-8 (Version None)
Quarter: 2011Q1

REPORT INFORMATION
  Report Type: 
  Country: None (occurrence: None)
  Receive Date: 20110202
  Receipt Date: 20110121
  Transmission Date: 20110831
  Serious: Yes (Life-Threatening, Hospitalization, Other)
  Sender: FDA-Public Use
  Company Number: CH-BRISTOL-MYERS SQUIBB COMPANY-15516925

PATIENT
  Age: 64 Year
  Sex: Male
  Weight: 86 kg

DRUGS (25)
  1. METAMIZOLE SODIUM [Suspect]
     Indication: PAIN
     Route: 048
     Dates: start: 20101215, end: 20101218
  2. ECOFENAC [Suspect]
  3. ZANTAC [Concomitant]
     Indication: PROPHYLAXIS
     Route: 040
  4. LYRICA [Concomitant]
     Indication: PAIN
     Route: 048
  5. MOTILIUM [Concomitant]
     Indication: NAUSEA
     Route: 048
  6. MOTILIUM [Concomitant]
     Indication: VOMITING
     Route: 048
  7. ELOXATIN [Suspect]
     Indication: COLON CANCER
     Route: 041
     Dates: start: 20100128, end: 20101215
  8. DEXAMETHASONE [Concomitant]
     Indication: PROPHYLAXIS
     Route: 041
     Dates: start: 20100128, end: 20101215
  9. TAVEGIL [Concomitant]
     Indication: PROPHYLAXIS
     Route: 040
     Dates: start: 20100128, end: 20101215
  10. PRIMPERAN TAB [Concomitant]
     Indication: VOMITING
     Route: 048
  11. GLUCOPHAGE [Suspect]
     Indication: TYPE 1 DIABETES MELLITUS
     Route: 048
     Dates: end: 20101218
  12. XELODA [Suspect]
     Indication: COLON CANCER
     Dosage: 2ND DOSE: 1800 MG(14D OF 28);UNK-16AUG10
     Route: 048
     Dates: start: 20100128, end: 20101218
  13. LIPANTHYL [Concomitant]
     Indication: LIPID METABOLISM DISORDER
     Dosage: LONG TERM THERAPY
     Route: 048
  14. DORMICUM [Concomitant]
     Indication: INSOMNIA
  15. PERFALGAN [Concomitant]
     Indication: PROPHYLAXIS
     Dosage: 47.619 MG
     Route: 041
     Dates: start: 20100128, end: 20101215
  16. FRAXIPARINE [Concomitant]
     Indication: PROPHYLAXIS
     Route: 058
     Dates: end: 20090401
  17. GLIMEPIRIDE [Concomitant]
     Indication: TYPE 1 DIABETES MELLITUS
     Route: 048
  18. ZOLPIDEM [Concomitant]
     Indication: INSOMNIA
  19. ZOLEDRONATE [Concomitant]
     Indication: BONE NEOPLASM MALIGNANT
     Route: 041
     Dates: end: 20101122
  20. PRIMPERAN TAB [Concomitant]
     Indication: NAUSEA
     Route: 048
  21. EMEND [Concomitant]
     Indication: PROPHYLAXIS
     Route: 048
     Dates: start: 20100128, end: 20101215
  22. NEXIUM [Concomitant]
     Route: 048
  23. AVASTIN [Suspect]
     Indication: COLON CANCER
     Dosage: DEC08-APR09(4 MON); 28JAN10-15DEC10(321D)
     Route: 041
     Dates: start: 20081201, end: 20101215
  24. ALOXI [Concomitant]
     Indication: PROPHYLAXIS
     Route: 040
  25. INSULATARD [Concomitant]
     Indication: TYPE 1 DIABETES MELLITUS
     Route: 058

REACTIONS (13)
  - HEPATIC ENZYME INCREASED [None]
  - BLOOD AMYLASE INCREASED [None]
  - LIPASE INCREASED [None]
  - JAUNDICE [None]
  - DEHYDRATION [None]
  - DEPRESSED LEVEL OF CONSCIOUSNESS [None]
  - LEUKOPENIA [None]
  - HYPOTENSION [None]
  - RENAL FAILURE ACUTE [None]
  - LACTIC ACIDOSIS [None]
  - HAEMOLYTIC ANAEMIA [None]
  - THROMBOCYTOPENIA [None]
  - CHOLESTASIS [None]
